FAERS Safety Report 6177841-6 (Version None)
Quarter: 2009Q2

REPORT INFORMATION
  Report Type: 
  Country: None (occurrence: None)
  Receive Date: 20090504
  Receipt Date: 20090427
  Transmission Date: 20091009
  Serious: Yes (Hospitalization)
  Sender: FDA-Public Use
  Company Number: US-ELI_LILLY_AND_COMPANY-US200904006286

PATIENT
  Sex: Female
  Weight: 130.61 kg

DRUGS (15)
  1. BYETTA [Suspect]
     Indication: TYPE 2 DIABETES MELLITUS
     Dosage: 5 UG, DAILY (1/D)
     Route: 058
     Dates: start: 20090101, end: 20090201
  2. BYETTA [Suspect]
     Dosage: 10 UG, DAILY (1/D)
     Route: 058
     Dates: start: 20090201, end: 20090201
  3. LEVEMIR [Concomitant]
     Indication: TYPE 2 DIABETES MELLITUS
     Dosage: 35 U, EACH EVENING
     Route: 058
  4. GLUCOTROL XL [Concomitant]
     Indication: TYPE 2 DIABETES MELLITUS
     Dosage: 20 MG, DAILY (1/D)
     Route: 048
  5. METFORMIN HCL [Concomitant]
     Indication: TYPE 2 DIABETES MELLITUS
     Dosage: 500 MG, DAILY (1/D)
     Route: 048
     Dates: start: 20090324
  6. SINGULAIR [Concomitant]
     Indication: ASTHMA
     Dosage: 10 MG, DAILY (1/D)
     Route: 048
     Dates: start: 20080101
  7. EFFEXOR XR [Concomitant]
     Indication: DEPRESSION
     Dosage: 150 MG, DAILY (1/D)
     Route: 048
  8. PRILOSEC [Concomitant]
     Indication: GASTROINTESTINAL DISORDER
     Dosage: 20 MG, 2/D
     Route: 048
     Dates: start: 19900101
  9. TRICOR [Concomitant]
     Indication: BLOOD CHOLESTEROL
     Dosage: 145 MG, DAILY (1/D)
     Route: 048
     Dates: start: 20090101
  10. THIAMINE HCL [Concomitant]
     Indication: VITAMIN B COMPLEX DEFICIENCY
     Dosage: 100 MG, DAILY (1/D)
     Route: 048
     Dates: start: 20090201
  11. FOLIC ACID [Concomitant]
     Dosage: 800 MG, DAILY (1/D)
     Route: 048
     Dates: start: 20090201
  12. VITAMIN D [Concomitant]
     Dosage: 50000 IU, DAILY (1/D)
     Route: 048
     Dates: start: 20090201
  13. DUONEB [Concomitant]
     Indication: ASTHMA
     Route: 055
  14. PULMICORT-100 [Concomitant]
     Indication: ASTHMA
     Route: 055
  15. PIOGLITAZONE [Concomitant]
     Indication: TYPE 2 DIABETES MELLITUS
     Dosage: 30 MG, DAILY (1/D)
     Route: 048

REACTIONS (5)
  - ABDOMINAL PAIN [None]
  - DIABETIC NEUROPATHY [None]
  - HAEMORRHOIDAL HAEMORRHAGE [None]
  - MUSCLE SPASMS [None]
  - RECTAL HAEMORRHAGE [None]
